FAERS Safety Report 8991150 (Version 1)
Quarter: 2012Q4

REPORT INFORMATION
  Report Type: 
  Country: US (occurrence: US)
  Receive Date: 20121231
  Receipt Date: 20121231
  Transmission Date: 20130627
  Serious: No
  Sender: FDA-Public Use
  Company Number: US-BAYER-2012-136295

PATIENT
  Age: 63 Year
  Sex: Female

DRUGS (4)
  1. CIPRO [Suspect]
  2. CIPRO [Suspect]
  3. GAS-X [Concomitant]
  4. GAS-X [Concomitant]

REACTIONS (1)
  - Rash [None]
